FAERS Safety Report 18696771 (Version 1)
Quarter: 2021Q1

REPORT INFORMATION
  Report Type: Other
  Country: US (occurrence: US)
  Receive Date: 20210104
  Receipt Date: 20210104
  Transmission Date: 20210419
  Serious: No
  Sender: FDA-Public Use
  Company Number: US-ROCHE-2604682

PATIENT
  Age: 27 Year
  Sex: Female

DRUGS (3)
  1. ALTEPLASE. [Suspect]
     Active Substance: ALTEPLASE
     Dosage: TPA DRIP AT 2MG/HR FOR 22 HOURS
     Route: 042
  2. HEPARIN [Concomitant]
     Active Substance: HEPARIN SODIUM
  3. ALTEPLASE. [Suspect]
     Active Substance: ALTEPLASE
     Indication: COVID-19
     Dosage: BOLUS OF 50MG TPA OVER 2 HOURS
     Route: 040

REACTIONS (3)
  - Intentional product use issue [Unknown]
  - No adverse event [Unknown]
  - Off label use [Unknown]
